FAERS Safety Report 16805231 (Version 1)
Quarter: 2019Q3

REPORT INFORMATION
  Report Type: Spontaneous
  Country: US (occurrence: US)
  Receive Date: 20190724
  Receipt Date: 20190724
  Transmission Date: 20191005
  Serious: Yes (Other)
  Sender: FDA-Public Use
  Company Number: None

PATIENT
  Age: 79 Year
  Sex: Male
  Weight: 74.39 kg

DRUGS (22)
  1. OMEPRAZOLE. [Concomitant]
     Active Substance: OMEPRAZOLE
  2. TOLNAFTATE OINTMENT CHELATED MAGNESIUM [Concomitant]
  3. IMODIUM [Concomitant]
     Active Substance: LOPERAMIDE HYDROCHLORIDE
  4. XOPENEX HFA [Concomitant]
     Active Substance: LEVALBUTEROL TARTRATE
  5. CALCIUM [Concomitant]
     Active Substance: CALCIUM
  6. HUMIRA [Suspect]
     Active Substance: ADALIMUMAB
     Indication: RHEUMATOID ARTHRITIS
     Dosage: ?          OTHER FREQUENCY:ONCE EVERY DO DAYS;OTHER ROUTE:INJECTION?
     Dates: start: 20181018, end: 20190704
  7. TRIAMINOLONE ACETONIDE CREAM [Concomitant]
  8. VOLTAREN [Concomitant]
     Active Substance: DICLOFENAC SODIUM
  9. ADVAIR HFA [Concomitant]
     Active Substance: FLUTICASONE PROPIONATE\SALMETEROL XINAFOATE
  10. CELECOXIB. [Concomitant]
     Active Substance: CELECOXIB
  11. IMODIUM [Concomitant]
     Active Substance: LOPERAMIDE HYDROCHLORIDE
  12. HUMIRA [Suspect]
     Active Substance: ADALIMUMAB
     Indication: SARCOIDOSIS
     Dosage: ?          OTHER FREQUENCY:ONCE EVERY DO DAYS;OTHER ROUTE:INJECTION?
     Dates: start: 20181018, end: 20190704
  13. HYDROXYCHLOROQUINE SULFATE. [Concomitant]
     Active Substance: HYDROXYCHLOROQUINE SULFATE
  14. MONTELUKAST [Concomitant]
     Active Substance: MONTELUKAST SODIUM
  15. FIBER TABLETS [Concomitant]
  16. PROBIOTIC [Concomitant]
     Active Substance: PROBIOTICS NOS
  17. LISINOPRIL. [Concomitant]
     Active Substance: LISINOPRIL
  18. TRIANCINOLONE ACETONIDE OINTMENT [Concomitant]
  19. CENTRUM SILVER [Concomitant]
     Active Substance: MINERALS\VITAMINS
  20. CLOTRIMAZOLE. [Concomitant]
     Active Substance: CLOTRIMAZOLE
  21. PREDNISONE. [Concomitant]
     Active Substance: PREDNISONE
  22. VIT. D [Concomitant]

REACTIONS (6)
  - Therapy cessation [None]
  - Injection site pain [None]
  - Pain [None]
  - Sleep disorder [None]
  - Pain of skin [None]
  - Product distribution issue [None]
